FAERS Safety Report 5217253-2 (Version None)
Quarter: 2007Q1

REPORT INFORMATION
  Report Type: 
  Country: None (occurrence: None)
  Receive Date: 20070122
  Receipt Date: 20070122
  Transmission Date: 20070707
  Serious: No
  Sender: FDA-Public Use
  Company Number: None

PATIENT
  Age: 53 Year
  Sex: Male
  Weight: 86.1834 kg

DRUGS (2)
  1. CARISOPRODOL [Suspect]
     Indication: BACK PAIN
     Dosage: 350 MG PO QID
     Route: 048
  2. LORAZEPAM [Suspect]
     Indication: ANXIETY
     Dosage: 1 MG PO TID + 2 MG QHS PRN ANXIETY
     Route: 048

REACTIONS (4)
  - DISORIENTATION [None]
  - DYSARTHRIA [None]
  - FALL [None]
  - MENTAL DISORDER [None]
